FAERS Safety Report 14650871 (Version 43)
Quarter: 2020Q2

REPORT INFORMATION
  Report Type: Spontaneous
  Country: US (occurrence: US)
  Receive Date: 20180316
  Receipt Date: 20200416
  Transmission Date: 20200713
  Serious: Yes (Hospitalization)
  Sender: FDA-Public Use
  Company Number: US-ACTELION-A-US2018-169063

PATIENT
  Age: 33 Year
  Sex: Female
  Weight: 69.84 kg

DRUGS (11)
  1. VELETRI [Suspect]
     Active Substance: EPOPROSTENOL
     Dosage: 48 NG/KG, PER MIN
     Route: 042
  2. OPSUMIT [Suspect]
     Active Substance: MACITENTAN
     Indication: PULMONARY ARTERIAL HYPERTENSION
     Dosage: 10 MG, QD
     Route: 048
  3. VELETRI [Suspect]
     Active Substance: EPOPROSTENOL
     Indication: PULMONARY ARTERIAL HYPERTENSION
     Dosage: 60 NG/KG, PER MIN
     Route: 042
  4. RISPERIDONE. [Concomitant]
     Active Substance: RISPERIDONE
     Dosage: UNK
     Dates: start: 202002
  5. VELETRI [Suspect]
     Active Substance: EPOPROSTENOL
     Dosage: 60 NG/KG, PER MIN
     Route: 042
  6. ADEMPAS [Suspect]
     Active Substance: RIOCIGUAT
     Indication: PRODUCT USED FOR UNKNOWN INDICATION
     Dosage: 2 MG, UNK
     Route: 065
  7. XANAX [Concomitant]
     Active Substance: ALPRAZOLAM
  8. VELETRI [Suspect]
     Active Substance: EPOPROSTENOL
     Dosage: 40 NG/KG, PER MIN
     Route: 042
  9. VELETRI [Suspect]
     Active Substance: EPOPROSTENOL
     Dosage: 50 NG/KG, PER MIN
     Route: 042
  10. VELETRI [Suspect]
     Active Substance: EPOPROSTENOL
     Dosage: 60 NG/KG, PER MIN
     Route: 042
  11. OPSUMIT [Suspect]
     Active Substance: MACITENTAN
     Dosage: 10 MG, QD
     Route: 048

REACTIONS (42)
  - Tympanic membrane perforation [Unknown]
  - Gingival bleeding [Unknown]
  - Catheter placement [Unknown]
  - Unevaluable event [Unknown]
  - Dyspepsia [Unknown]
  - Oedema [Not Recovered/Not Resolved]
  - Headache [Not Recovered/Not Resolved]
  - Palpitations [Unknown]
  - Panic attack [Unknown]
  - Asthenia [Unknown]
  - Dyspnoea exertional [Not Recovered/Not Resolved]
  - Hypotension [Unknown]
  - Ear infection [Unknown]
  - Dyspnoea [Unknown]
  - Abdominal discomfort [Unknown]
  - Malaise [Unknown]
  - Pain in jaw [Not Recovered/Not Resolved]
  - Pain in extremity [Unknown]
  - Dizziness [Unknown]
  - Nasopharyngitis [Unknown]
  - Ear discomfort [Unknown]
  - Medical procedure [Unknown]
  - Device infusion issue [Recovered/Resolved]
  - Stress [Unknown]
  - Lower respiratory tract infection [Unknown]
  - Seasonal allergy [Unknown]
  - Sinus disorder [Unknown]
  - Neuropathy peripheral [Not Recovered/Not Resolved]
  - Oropharyngeal discomfort [Unknown]
  - Drug delivery system issue [Unknown]
  - Diarrhoea [Not Recovered/Not Resolved]
  - Peripheral swelling [Unknown]
  - Wheezing [Unknown]
  - Sleep disorder [Unknown]
  - Coagulopathy [Unknown]
  - Skin laceration [Unknown]
  - Impaired healing [Unknown]
  - Cough [Not Recovered/Not Resolved]
  - Flushing [Not Recovered/Not Resolved]
  - Anxiety [Unknown]
  - Hypersensitivity [Unknown]
  - Nasal discomfort [Unknown]

NARRATIVE: CASE EVENT DATE: 20180303
